FAERS Safety Report 6295289-0 (Version None)
Quarter: 2009Q3

REPORT INFORMATION
  Report Type: 
  Country: None (occurrence: None)
  Receive Date: 20090803
  Receipt Date: 20090629
  Transmission Date: 20100115
  Serious: No
  Sender: FDA-Public Use
  Company Number: US-BAYER-200925788NA

PATIENT
  Age: 32 Year
  Sex: Female
  Weight: 91 kg

DRUGS (3)
  1. ULTRAVIST 300 [Suspect]
     Indication: COMPUTERISED TOMOGRAM ABDOMEN
     Dosage: TOTAL DAILY DOSE: 150 ML
     Route: 042
     Dates: start: 20090629, end: 20090629
  2. PROVENTIL-HFA [Concomitant]
  3. BARIUM [Concomitant]
     Route: 048
     Dates: start: 20090629, end: 20090629

REACTIONS (3)
  - ERYTHEMA [None]
  - URTICARIA [None]
  - WHEEZING [None]
